FAERS Safety Report 7014208-2 (Version None)
Quarter: 2010Q3

REPORT INFORMATION
  Report Type: 
  Country: None (occurrence: None)
  Receive Date: 20100927
  Receipt Date: 20100915
  Transmission Date: 20110219
  Serious: Yes (Disabling)
  Sender: FDA-Public Use
  Company Number: US-BAYER-201034479NA

PATIENT
  Sex: Female

DRUGS (2)
  1. YAZ [Suspect]
     Indication: ACNE
     Route: 048
     Dates: start: 20050701
  2. YASMIN [Suspect]
     Indication: ACNE
     Route: 048
     Dates: start: 20050701

REACTIONS (1)
  - CEREBROVASCULAR ACCIDENT [None]
